FAERS Safety Report 7601699-9 (Version None)
Quarter: 2011Q3

REPORT INFORMATION
  Report Type: 
  Country: None (occurrence: None)
  Receive Date: 20110711
  Receipt Date: 20110630
  Transmission Date: 20111222
  Serious: Yes (Hospitalization, Other)
  Sender: FDA-Public Use
  Company Number: DE-BAXTER-2011BH011277

PATIENT
  Sex: Male
  Weight: 66 kg

DRUGS (2)
  1. PHYSIOSOL IN PLASTIC CONTAINER [Suspect]
     Indication: PERITONEAL DIALYSIS
     Route: 033
     Dates: end: 20110303
  2. EXTRANEAL [Suspect]
     Indication: PERITONEAL DIALYSIS
     Route: 033
     Dates: end: 20110303

REACTIONS (17)
  - ILEAL FISTULA [None]
  - ADHESION [None]
  - POST PROCEDURAL COMPLICATION [None]
  - PANCREATIC FISTULA [None]
  - ABDOMINAL SYMPTOM [None]
  - PNEUMONIA [None]
  - ASCITES [None]
  - FIBROSIS [None]
  - SCLEROSING ENCAPSULATING PERITONITIS [None]
  - INFECTIOUS PERITONITIS [None]
  - PLEURAL EFFUSION [None]
  - CONSTIPATION [None]
  - VOMITING [None]
  - ABDOMINAL PAIN [None]
  - GASTROOESOPHAGEAL REFLUX DISEASE [None]
  - ULTRAFILTRATION FAILURE [None]
  - ATELECTASIS [None]
